FAERS Safety Report 7115217-5 (Version None)
Quarter: 2010Q4

REPORT INFORMATION
  Report Type: 
  Country: None (occurrence: None)
  Receive Date: 20101122
  Receipt Date: 20101108
  Transmission Date: 20110411
  Serious: Yes (Other)
  Sender: FDA-Public Use
  Company Number: PHHY2010SI57813

PATIENT
  Sex: Female

DRUGS (6)
  1. STI571/CGP57148B T35717+CAPS [Suspect]
     Indication: CHRONIC MYELOID LEUKAEMIA
     Dosage: 400 MG DAILY
     Route: 048
     Dates: start: 20070620, end: 20090325
  2. STI571/CGP57148B T35717+CAPS [Suspect]
     Dosage: 300 MG DAILY
     Route: 048
     Dates: start: 20071003
  3. STI571/CGP57148B T35717+CAPS [Suspect]
     Dosage: 400 MG DAILY
     Route: 048
     Dates: start: 20080227
  4. ALLOPURINOL [Concomitant]
     Dosage: 200 MG
     Route: 048
     Dates: start: 20070620
  5. EDEMID [Concomitant]
     Indication: CARDIAC FAILURE
     Dosage: 20 MG
     Dates: start: 20070620
  6. ARANESP [Concomitant]
     Indication: ANAEMIA
     Dosage: 500 MG
     Dates: start: 20080227

REACTIONS (3)
  - ANAEMIA [None]
  - DEMENTIA ALZHEIMER'S TYPE [None]
  - EYE SWELLING [None]
